FAERS Safety Report 24901247 (Version 1)
Quarter: 2025Q1

REPORT INFORMATION
  Report Type: Spontaneous
  Country: GB (occurrence: GB)
  Receive Date: 20250129
  Receipt Date: 20250129
  Transmission Date: 20250409
  Serious: Yes (Other)
  Sender: SANDOZ
  Company Number: None

PATIENT
  Age: 86 Year
  Sex: Female
  Weight: 47 kg

DRUGS (15)
  1. CLARITHROMYCIN [Suspect]
     Active Substance: CLARITHROMYCIN
     Indication: Ill-defined disorder
     Dosage: TAKE ONE EVERY 12 HRS
     Route: 065
     Dates: start: 20250106
  2. ACIDEX ADVANCE [Concomitant]
     Indication: Ill-defined disorder
     Route: 065
     Dates: start: 20241011
  3. AMLODIPINE [Concomitant]
     Active Substance: AMLODIPINE BESYLATE
     Indication: Ill-defined disorder
     Dosage: 1 DAILY
     Route: 065
     Dates: start: 20241011
  4. APIXABAN [Concomitant]
     Active Substance: APIXABAN
     Indication: Ill-defined disorder
     Dosage: TAKE ONE TWICE DAILY
     Route: 065
     Dates: start: 20241011
  5. BRINZOLAMIDE [Concomitant]
     Active Substance: BRINZOLAMIDE
     Indication: Ill-defined disorder
     Dosage: USE TWICE DAILY TO BOTH EYES
     Route: 065
     Dates: start: 20241011
  6. CALCIUM CARBONATE [Concomitant]
     Active Substance: CALCIUM CARBONATE
     Indication: Ill-defined disorder
     Route: 065
     Dates: start: 20241011, end: 20241202
  7. COCODAMOL [Concomitant]
     Active Substance: ACETAMINOPHEN\CODEINE PHOSPHATE
     Indication: Ill-defined disorder
     Route: 065
     Dates: start: 20241011
  8. DIGOXIN [Concomitant]
     Active Substance: DIGOXIN
     Indication: Ill-defined disorder
     Route: 065
     Dates: start: 20241011
  9. CALCIUM CARBONATE\CHOLECALCIFEROL [Concomitant]
     Active Substance: CALCIUM CARBONATE\CHOLECALCIFEROL
     Indication: Ill-defined disorder
     Dosage: TAKE ONE TWICE DAILY
     Route: 065
     Dates: start: 20241202
  10. POTASSIUM BICARBONATE\SODIUM ALGINATE [Concomitant]
     Active Substance: POTASSIUM BICARBONATE\SODIUM ALGINATE
     Indication: Ill-defined disorder
     Route: 065
     Dates: start: 20250104
  11. NITROGLYCERIN [Concomitant]
     Active Substance: NITROGLYCERIN
     Indication: Ill-defined disorder
     Route: 065
     Dates: start: 20241011
  12. LANSOPRAZOLE [Concomitant]
     Active Substance: LANSOPRAZOLE
     Indication: Ill-defined disorder
     Route: 065
     Dates: start: 20241011
  13. PRAVASTATIN [Concomitant]
     Active Substance: PRAVASTATIN
     Indication: Ill-defined disorder
     Dosage: ONE EACH NIGHT
     Route: 065
     Dates: start: 20241011, end: 20250106
  14. RAMIPRIL [Concomitant]
     Active Substance: RAMIPRIL
     Indication: Ill-defined disorder
     Dosage: ONE DAILY
     Route: 065
     Dates: start: 20241011
  15. ROSUVASTATIN [Concomitant]
     Active Substance: ROSUVASTATIN
     Indication: Ill-defined disorder
     Route: 065
     Dates: start: 20241219

REACTIONS (4)
  - Swollen tongue [Recovered/Resolved]
  - Dysgeusia [Unknown]
  - Palpitations [Unknown]
  - Malaise [Unknown]
